FAERS Safety Report 9549352 (Version 1)
Quarter: 2013Q3

REPORT INFORMATION
  Report Type: Spontaneous
  Country: FR (occurrence: None)
  Receive Date: 20130919
  Receipt Date: 20130919
  Transmission Date: 20140515
  Serious: Yes (Hospitalization)
  Sender: FDA-Public Use
  Company Number: SYM-2013-10625

PATIENT
  Age: 77 Year
  Sex: Male

DRUGS (10)
  1. FLAGYL (METRONIDAZOLE) (METRONIDAZOLE) [Suspect]
     Route: 048
     Dates: start: 20121210, end: 20121227
  2. DALACIN (CLINDAMYCIN HYDROCHLORIDE) (CLINDAMYCIN HYDROCHLORIDE) [Suspect]
     Route: 048
     Dates: start: 20121210, end: 20121224
  3. COTAREG (CO-DIOVAN-)(HYDROCHLOROTHIAZIDE, VALSARTAN) [Concomitant]
  4. DIAMICRON(GLICLAZIDE)(GLICLAZIDE) [Concomitant]
  5. METFORMIN(METFORMIN)(METFORMIN) [Concomitant]
  6. LANTUS(INSULIN GLARGINE)(INSULIN GLARGINE) [Concomitant]
  7. HUMALOG(INSULIN LISPRO)(INSULIN LISPRO) [Concomitant]
  8. ORLOCET(OFLOXACTIN)(OFLOXACIN) [Concomitant]
  9. UMULINE(INSULIN HMAN ZINC SUSPENSION)(INSULIN HUMAN ZINC SUSPENSION) [Concomitant]
  10. VALSARTAN(VALSARTAN)(VALSARTAN) [Concomitant]

REACTIONS (5)
  - Neutropenia [None]
  - Wound necrosis [None]
  - Glycosylated haemoglobin increased [None]
  - Streptococcus test positive [None]
  - Escherichia test positive [None]
